FAERS Safety Report 9736265 (Version 1)
Quarter: 2013Q4

REPORT INFORMATION
  Report Type: Spontaneous
  Country: AU (occurrence: AU)
  Receive Date: 20131206
  Receipt Date: 20131206
  Transmission Date: 20140711
  Serious: Yes (Other)
  Sender: FDA-Public Use
  Company Number: AU-PFIZER INC-2013343290

PATIENT
  Age: 55 Year
  Sex: Male

DRUGS (6)
  1. GEMCITABINE HYDROCHLORIDE [Suspect]
     Indication: ADENOCARCINOMA PANCREAS
     Dosage: 1000 MG/M2, CYCLIC (ON DAYS 1, 8 AND 15 OF A 28-DAY CYCLE)
     Dates: start: 20110712
  2. GEMCITABINE HYDROCHLORIDE [Suspect]
     Dosage: 1000 MG/M2, CYCLIC (DAY 1, CYCLE 5)
     Dates: start: 20111124
  3. PANCREATIC ENZYMES [Concomitant]
     Dosage: UNK
  4. OMEPRAZOLE [Concomitant]
     Dosage: UNK
  5. VALPROATE SODIUM [Concomitant]
     Dosage: UNK
  6. TRANYLCYPROMINE [Concomitant]
     Dosage: UNK

REACTIONS (1)
  - Thrombotic microangiopathy [Recovering/Resolving]
